FAERS Safety Report 7487921-0 (Version None)
Quarter: 2011Q2

REPORT INFORMATION
  Report Type: 
  Country: None (occurrence: None)
  Receive Date: 20110518
  Receipt Date: 20110518
  Transmission Date: 20111010
  Serious: Yes (Hospitalization, Other)
  Sender: FDA-Public Use
  Company Number: FR-JNJFOC-20100708060

PATIENT
  Age: 86 Year
  Sex: Male

DRUGS (4)
  1. OFLOXACIN [Suspect]
     Indication: BRONCHIECTASIS
     Route: 065
  2. CEFOTAXIME [Suspect]
     Indication: CHRONIC OBSTRUCTIVE PULMONARY DISEASE
     Route: 065
  3. OFLOXACIN [Suspect]
     Indication: PYREXIA
     Route: 065
  4. OFLOXACIN [Suspect]
     Indication: TACHYPNOEA
     Route: 065

REACTIONS (4)
  - SEPSIS [None]
  - DRUG INEFFECTIVE [None]
  - DRUG RESISTANCE [None]
  - CHRONIC OBSTRUCTIVE PULMONARY DISEASE [None]
